FAERS Safety Report 19014384 (Version 1)
Quarter: 2021Q1

REPORT INFORMATION
  Report Type: Other
  Country: DE (occurrence: DE)
  Receive Date: 20210316
  Receipt Date: 20210316
  Transmission Date: 20210420
  Serious: Yes (Death, Other)
  Sender: FDA-Public Use
  Company Number: DE-B.BRAUN MEDICAL INC.-2108069

PATIENT
  Age: 80 Year
  Sex: Male
  Weight: 69 kg

DRUGS (43)
  1. ONDANSETRON [Concomitant]
     Active Substance: ONDANSETRON
  2. HEPARIN [Concomitant]
     Active Substance: HEPARIN SODIUM
  3. SODIUM CITRATE. [Concomitant]
     Active Substance: SODIUM CITRATE
  4. BISACODYL. [Concomitant]
     Active Substance: BISACODYL
  5. METRONIDAZOLE. [Concomitant]
     Active Substance: METRONIDAZOLE
  6. SALBUTAMOL [Concomitant]
     Active Substance: ALBUTEROL
  7. VASOPRESSIN. [Concomitant]
     Active Substance: VASOPRESSIN
  8. SIMVASTATIN. [Concomitant]
     Active Substance: SIMVASTATIN
  9. CALCITRIOL. [Concomitant]
     Active Substance: CALCITRIOL
  10. BETAMETHASONE. [Concomitant]
     Active Substance: BETAMETHASONE
  11. AMIODARONE HYDROCHLORIDE. [Concomitant]
     Active Substance: AMIODARONE HYDROCHLORIDE
  12. UMECLIDINIUM BROMIDE [Concomitant]
     Active Substance: UMECLIDINIUM BROMIDE
  13. ASCORBIC ACID. [Concomitant]
     Active Substance: ASCORBIC ACID
  14. LANTHANUM CARBONATE. [Concomitant]
     Active Substance: LANTHANUM CARBONATE
  15. DULCOLAX NOS [Concomitant]
     Active Substance: BISACODYL OR DOCUSATE SODIUM
  16. QOW [Concomitant]
  17. MELATONIN [Concomitant]
     Active Substance: MELATONIN
  18. MACROGOL 3350 [Concomitant]
     Active Substance: POLYETHYLENE GLYCOL 3350
  19. PHYTONADIONE. [Concomitant]
     Active Substance: PHYTONADIONE
  20. HYDROMORPHONE HCL [Concomitant]
     Active Substance: HYDROMORPHONE HYDROCHLORIDE
  21. NOREPINEPHRINE. [Concomitant]
     Active Substance: NOREPINEPHRINE
  22. ARANESP [Concomitant]
     Active Substance: DARBEPOETIN ALFA
  23. DISTIGMINE BROMIDE [Concomitant]
     Active Substance: DISTIGMINE BROMIDE
  24. SODIUM FERRIC GLUCONATE COMPLEX. [Concomitant]
     Active Substance: SODIUM FERRIC GLUCONATE COMPLEX
  25. DOBUTAMINE [Concomitant]
     Active Substance: DOBUTAMINE HYDROCHLORIDE
  26. LANSOPRAZOLE. [Concomitant]
     Active Substance: LANSOPRAZOLE
  27. SODIUM PHOSPHATE MONOBASIC [Concomitant]
     Active Substance: SODIUM PHOSPHATE, MONOBASIC
  28. GLUCOSE (DEXTROSE MONOHYDRATE) [Concomitant]
     Active Substance: DEXTROSE MONOHYDRATE
  29. DARBEPOETIN ALFA [Concomitant]
     Active Substance: DARBEPOETIN ALFA
  30. ATROVENT [Concomitant]
     Active Substance: IPRATROPIUM BROMIDE
  31. ACETAMINOPHEN INJECTION 1,000 MG/100 ML (10 MG/ML) ? NDA 204957 [Suspect]
     Active Substance: ACETAMINOPHEN
  32. CEFTRIAXONE. [Concomitant]
     Active Substance: CEFTRIAXONE
  33. PHYTOMENADIONE [Concomitant]
     Active Substance: PHYTONADIONE
  34. MACROGOL 3350;POTASSIUM CHLORIDE;SODIUM ASCORBATE;SODIUM CHLORIDE;SODI [Concomitant]
  35. ALLOPURINOL. [Concomitant]
     Active Substance: ALLOPURINOL
  36. GABAPENTIN. [Concomitant]
     Active Substance: GABAPENTIN
  37. WARFARIN SODIUM. [Concomitant]
     Active Substance: WARFARIN SODIUM
  38. DALTEPARIN SODIUM [Concomitant]
     Active Substance: DALTEPARIN SODIUM
  39. SODIUM PICOSULFATE [Concomitant]
     Active Substance: SODIUM PICOSULFATE
  40. INSULIN DEGLUDEC [Concomitant]
     Active Substance: INSULIN DEGLUDEC
  41. FLUTICASONE FUROATE [Concomitant]
     Active Substance: FLUTICASONE FUROATE
  42. PYRIDOXINE HYDROCHLORIDE. [Concomitant]
     Active Substance: PYRIDOXINE HYDROCHLORIDE
  43. INSULIN ASPART [Concomitant]
     Active Substance: INSULIN ASPART

REACTIONS (14)
  - Multiple organ dysfunction syndrome [None]
  - Hyponatraemia [None]
  - Appendicitis [None]
  - General physical health deterioration [None]
  - Sepsis [None]
  - Ascites [None]
  - Abdominal distension [None]
  - Vomiting [None]
  - Nausea [None]
  - Appendicolith [None]
  - Stress [None]
  - Abdominal pain [None]
  - Constipation [None]
  - Cardiogenic shock [None]
